FAERS Safety Report 18383616 (Version 1)
Quarter: 2020Q4

REPORT INFORMATION
  Report Type: Spontaneous
  Country: US (occurrence: US)
  Receive Date: 20201014
  Receipt Date: 20201014
  Transmission Date: 20210114
  Serious: Yes (Hospitalization, Congenital Anomaly)
  Sender: FDA-Public Use
  Company Number: US-TEVA-2020-US-1838481

PATIENT
  Sex: Male

DRUGS (10)
  1. PERCOCET [Suspect]
     Active Substance: ACETAMINOPHEN\OXYCODONE HYDROCHLORIDE
     Route: 065
  2. TRAMADOL. [Suspect]
     Active Substance: TRAMADOL
     Dosage: FORM OF ADMIN: EXTENDED RELEASE TABLET
     Route: 065
  3. HYSINGLA ER [Suspect]
     Active Substance: HYDROCODONE BITARTRATE
     Dosage: FORM OF ADMIN: EXTENDED RELEASE
     Route: 065
  4. DHC PLUS [Suspect]
     Active Substance: ACETAMINOPHEN\CAFFEINE\DIHYDROCODEINE BITARTRATE
     Route: 065
  5. OXYCODONE [Suspect]
     Active Substance: OXYCODONE
     Dosage: FORM OF ADMIN: IMMEDIATE RELEASE TABLET
     Route: 065
  6. PALLADONE [Suspect]
     Active Substance: HYDROMORPHONE HYDROCHLORIDE
     Route: 065
  7. ACETAMINOPHEN W/HYDROCODONE [Suspect]
     Active Substance: ACETAMINOPHEN\HYDROCODONE
     Route: 065
  8. OXYFAST [Suspect]
     Active Substance: OXYCODONE
     Route: 065
  9. MSIR [Suspect]
     Active Substance: MORPHINE SULFATE
     Route: 065
  10. HYDROMORPHONE ORAL SOLUTION [Suspect]
     Active Substance: HYDROMORPHONE
     Route: 048

REACTIONS (12)
  - Personal relationship issue [Unknown]
  - Depression [Unknown]
  - Anxiety [Unknown]
  - General physical health deterioration [Unknown]
  - Social problem [Unknown]
  - Congenital anomaly [Unknown]
  - Drug dependence [Unknown]
  - Educational problem [Unknown]
  - Loss of employment [Unknown]
  - Overdose [Unknown]
  - Emotional distress [Unknown]
  - Economic problem [Unknown]
